FAERS Safety Report 4916805-4 (Version None)
Quarter: 2006Q1

REPORT INFORMATION
  Report Type: 
  Country: None (occurrence: None)
  Receive Date: 20060220
  Receipt Date: 20060207
  Transmission Date: 20060701
  Serious: Yes (Other)
  Sender: FDA-Public Use
  Company Number: JP-ROCHE-436178

PATIENT
  Age: 6 Year
  Sex: Male

DRUGS (4)
  1. TAMIFLU [Suspect]
     Indication: INFLUENZA
     Route: 048
     Dates: start: 20050615, end: 20050615
  2. TAMIFLU [Suspect]
     Route: 048
     Dates: start: 20060206, end: 20060206
  3. PULSMARIN A [Concomitant]
     Route: 048
  4. MEDICON [Concomitant]
     Dosage: DOSE FORM: ORAL FORMULATION (NOT OTHERWISE SPECIFIED).
     Route: 048

REACTIONS (1)
  - HALLUCINATION [None]
